FAERS Safety Report 13710725 (Version 1)
Quarter: 2017Q2

REPORT INFORMATION
  Report Type: Spontaneous
  Country: US (occurrence: US)
  Receive Date: 20170630
  Receipt Date: 20170630
  Transmission Date: 20170830
  Serious: Yes (Disabling)
  Sender: FDA-Public Use
  Company Number: None

PATIENT
  Age: 38 Year
  Sex: Male
  Weight: 78.75 kg

DRUGS (11)
  1. CO-Q 10 [Concomitant]
     Active Substance: UBIDECARENONE
  2. GLUCOSAMINE CHONDROITIN W MSM [Concomitant]
  3. RED YEAST RICE [Concomitant]
     Active Substance: DIETARY SUPPLEMENT
  4. VIT-C [Concomitant]
  5. VITAMIN D [Concomitant]
     Active Substance: CHOLECALCIFEROL
  6. VYVANSE [Suspect]
     Active Substance: LISDEXAMFETAMINE DIMESYLATE
     Indication: ATTENTION DEFICIT/HYPERACTIVITY DISORDER
     Dosage: ?          OTHER STRENGTH:MG;QUANTITY:1 CAPSULE(S);?
     Route: 048
  7. CALCIUM CITRATE [Concomitant]
     Active Substance: CALCIUM CITRATE
  8. MULTIVITAMIN [Concomitant]
     Active Substance: VITAMINS
  9. LOVAZA [Concomitant]
     Active Substance: OMEGA-3-ACID ETHYL ESTERS
  10. GINKGO [Concomitant]
     Active Substance: GINKGO
  11. L-TYROSINE [Concomitant]

REACTIONS (3)
  - Libido decreased [None]
  - Erectile dysfunction [None]
  - Orgasm abnormal [None]

NARRATIVE: CASE EVENT DATE: 20170504
